FAERS Safety Report 5872227-3 (Version None)
Quarter: 2008Q3

REPORT INFORMATION
  Report Type: 
  Country: None (occurrence: None)
  Receive Date: 20080905
  Receipt Date: 20080903
  Transmission Date: 20090109
  Serious: Yes (Hospitalization)
  Sender: FDA-Public Use
  Company Number: DE-EISAI MEDICAL RESEARCH-E2090-00537-CLI-DE

PATIENT
  Sex: Male

DRUGS (1)
  1. ZONISAMIDE [Suspect]
     Indication: CONVULSION
     Route: 048
     Dates: end: 20080801

REACTIONS (2)
  - MENTAL DISORDER DUE TO A GENERAL MEDICAL CONDITION [None]
  - SUICIDAL IDEATION [None]
